FAERS Safety Report 5816003-6 (Version None)
Quarter: 2008Q3

REPORT INFORMATION
  Report Type: 
  Country: None (occurrence: None)
  Receive Date: 20080721
  Receipt Date: 20080711
  Transmission Date: 20090109
  Serious: Yes (Other)
  Sender: FDA-Public Use
  Company Number: PHHY2008DE13951

PATIENT
  Sex: Female

DRUGS (5)
  1. DIOVAN [Suspect]
     Dosage: UNK
     Dates: start: 20080101
  2. INSULIN [Concomitant]
  3. HYDROCHLOROTHIAZIDE [Concomitant]
  4. TAMSULOSIN HCL [Concomitant]
  5. HMG COA REDUCTASE INHIBITORS [Concomitant]

REACTIONS (3)
  - DIZZINESS [None]
  - HYPOGLYCAEMIA [None]
  - TREMOR [None]
